FAERS Safety Report 4318112-X (Version None)
Quarter: 2004Q1

REPORT INFORMATION
  Report Type: 
  Country: None (occurrence: None)
  Receive Date: 20040317
  Receipt Date: 20040312
  Transmission Date: 20041129
  Serious: Yes (Other)
  Sender: FDA-Public Use
  Company Number: JP-BRISTOL-MYERS SQUIBB COMPANY-12531281

PATIENT
  Age: 74 Year
  Sex: Female

DRUGS (2)
  1. RESLIN [Suspect]
     Indication: INSOMNIA
     Route: 048
  2. PAXIL [Suspect]
     Indication: DEPRESSION
     Dosage: DOSE RANGE:  10 MG TO 30 MG/DAY
     Route: 048

REACTIONS (6)
  - CEREBRAL ATROPHY [None]
  - DISORIENTATION [None]
  - FAECAL INCONTINENCE [None]
  - HALLUCINATION [None]
  - SEROTONIN SYNDROME [None]
  - URINARY INCONTINENCE [None]
